FAERS Safety Report 8512755-5 (Version None)
Quarter: 2012Q3

REPORT INFORMATION
  Report Type: 
  Country: None (occurrence: None)
  Receive Date: 20120716
  Receipt Date: 20120713
  Transmission Date: 20120928
  Serious: No
  Sender: FDA-Public Use
  Company Number: US-PFIZER INC-2012169706

PATIENT
  Sex: Female
  Weight: 90.703 kg

DRUGS (1)
  1. ADVIL CONGESTION RELIEF [Suspect]
     Indication: NASAL CONGESTION
     Dosage: 100/10 MG, 3X/DAY
     Route: 048
     Dates: start: 20120707, end: 20120713

REACTIONS (1)
  - DRUG INEFFECTIVE [None]
